FAERS Safety Report 9325155 (Version 1)
Quarter: 2013Q2

REPORT INFORMATION
  Report Type: Spontaneous
  Country: US (occurrence: US)
  Receive Date: 20130603
  Receipt Date: 20130603
  Transmission Date: 20140414
  Serious: No
  Sender: FDA-Public Use
  Company Number: US-009507513-1305USA017625

PATIENT
  Sex: Female

DRUGS (4)
  1. VICTRELIS [Suspect]
     Indication: HEPATITIS C
     Dosage: 800 MG, TID
     Route: 048
     Dates: start: 20130311
  2. PEGASYS [Suspect]
     Indication: HEPATITIS C
  3. RIBASPHERE [Suspect]
     Indication: HEPATITIS C
  4. PROMACTA [Concomitant]

REACTIONS (14)
  - Increased tendency to bruise [Unknown]
  - Chromaturia [Unknown]
  - Abdominal pain [Unknown]
  - Local swelling [Unknown]
  - Platelet count decreased [Unknown]
  - Fatigue [Unknown]
  - Influenza like illness [Unknown]
  - Headache [Unknown]
  - Nausea [Unknown]
  - Dry mouth [Unknown]
  - Pallor [Unknown]
  - Pruritus [Unknown]
  - Vision blurred [Unknown]
  - Dysgeusia [Unknown]
